FAERS Safety Report 10880006 (Version 1)
Quarter: 2015Q1

REPORT INFORMATION
  Report Type: Report from Study
  Country: EE (occurrence: EE)
  Receive Date: 20150302
  Receipt Date: 20150302
  Transmission Date: 20150721
  Serious: Yes (Hospitalization)
  Sender: FDA-Public Use
  Company Number: EE-TAKEDA-2013-01221

PATIENT

DRUGS (3)
  1. DEXAMETHASONE. [Concomitant]
     Active Substance: DEXAMETHASONE
     Indication: PLASMA CELL MYELOMA
     Dosage: UNK
     Dates: start: 20120925, end: 20121006
  2. VELCADE [Suspect]
     Active Substance: BORTEZOMIB
     Indication: PLASMA CELL MYELOMA
     Dosage: UNK
     Route: 065
     Dates: start: 20120925, end: 20121006
  3. ONDANSETRON [Concomitant]
     Active Substance: ONDANSETRON
     Indication: PLASMA CELL MYELOMA
     Dosage: UNK
     Dates: start: 20120925, end: 20121006

REACTIONS (3)
  - Renal disorder [None]
  - Pseudomonas test positive [None]
  - Candida pneumonia [Not Recovered/Not Resolved]

NARRATIVE: CASE EVENT DATE: 20121016
